FAERS Safety Report 4506570-7 (Version None)
Quarter: 2004Q4

REPORT INFORMATION
  Report Type: 
  Country: None (occurrence: None)
  Receive Date: 20041122
  Receipt Date: 20041025
  Transmission Date: 20050328
  Serious: Yes (Life-Threatening, Hospitalization)
  Sender: FDA-Public Use
  Company Number: 2004-10-0922

PATIENT
  Age: 38 Year
  Sex: Male

DRUGS (2)
  1. BUPRENORPHINE HCL [Suspect]
     Indication: DRUG WITHDRAWAL SYNDROME
     Dosage: 6 - 8 MG DAILY (EXACT DOSAGE UNKNOWN)
     Route: 060
     Dates: start: 20040827, end: 20040827
  2. HEROIN [Concomitant]
     Indication: DRUG USE FOR UNKNOWN INDICATION
     Route: 055

REACTIONS (5)
  - DRUG ABUSER [None]
  - DYSPNOEA [None]
  - GAZE PALSY [None]
  - NAUSEA [None]
  - OBSTRUCTIVE AIRWAYS DISORDER [None]
